FAERS Safety Report 9365332 (Version 1)
Quarter: 2013Q2

REPORT INFORMATION
  Report Type: Spontaneous
  Country: CA (occurrence: CA)
  Receive Date: 20130625
  Receipt Date: 20130625
  Transmission Date: 20140414
  Serious: Yes (Other)
  Sender: FDA-Public Use
  Company Number: CA-AMGEN-CANSP2013044159

PATIENT
  Age: 77 Year
  Sex: Male

DRUGS (3)
  1. XGEVA [Suspect]
     Indication: PROSTATE CANCER
     Dosage: UNK
     Dates: start: 2012
  2. CALCIUM [Concomitant]
     Dosage: 2000 MG, QD
  3. VITAMIN D                          /00107901/ [Concomitant]

REACTIONS (2)
  - Osteonecrosis of jaw [Recovering/Resolving]
  - Hypocalcaemia [Recovering/Resolving]
